FAERS Safety Report 4552226-4 (Version None)
Quarter: 2004Q4

REPORT INFORMATION
  Report Type: 
  Country: None (occurrence: None)
  Receive Date: 20041217
  Receipt Date: 20040809
  Transmission Date: 20050328
  Serious: No
  Sender: FDA-Public Use
  Company Number: 2004-BP-06770BP

PATIENT
  Age: 60 Year
  Sex: Female

DRUGS (6)
  1. SPIRIVA [Suspect]
     Indication: CHRONIC OBSTRUCTIVE AIRWAYS DISEASE
     Dosage: 18 MCG (18 MCG),IH
     Route: 055
     Dates: start: 20040701, end: 20040806
  2. ALBUTEROL [Concomitant]
  3. FLOVENT [Concomitant]
  4. EVISTA (SIMVASTATIN) [Concomitant]
  5. VALTREX [Concomitant]
  6. ERHTHROMYCIN (ERYTHROMYCIN) [Concomitant]

REACTIONS (7)
  - ARTHRALGIA [None]
  - GENERALISED ERYTHEMA [None]
  - GENERALISED OEDEMA [None]
  - MALAISE [None]
  - PARAESTHESIA [None]
  - PRURITUS GENERALISED [None]
  - RASH PUSTULAR [None]
